FAERS Safety Report 24268918 (Version 1)
Quarter: 2024Q3

REPORT INFORMATION
  Report Type: Spontaneous
  Country: US (occurrence: None)
  Receive Date: 20240829
  Receipt Date: 20240829
  Transmission Date: 20241017
  Serious: No
  Sender: Public
  Company Number: None

PATIENT
  Age: 74 Year
  Sex: Female

DRUGS (1)
  1. RYTARY [Suspect]
     Active Substance: CARBIDOPA\LEVODOPA
     Dosage: OTHER FREQUENCY : 3 CAPS QD;?
     Route: 048

REACTIONS (2)
  - Asthenia [None]
  - Unadjusted dose administered [None]

NARRATIVE: CASE EVENT DATE: 20240829
